FAERS Safety Report 17717994 (Version 1)
Quarter: 2020Q2

REPORT INFORMATION
  Report Type: Spontaneous
  Country: US (occurrence: US)
  Receive Date: 20200428
  Receipt Date: 20200428
  Transmission Date: 20200714
  Serious: Yes (Other)
  Sender: FDA-Public Use
  Company Number: US-OTSUKA-2020_010490

PATIENT
  Age: 14 Year
  Sex: Male
  Weight: 81.6 kg

DRUGS (7)
  1. ABILIFY [Suspect]
     Active Substance: ARIPIPRAZOLE
     Indication: PRODUCT USED FOR UNKNOWN INDICATION
     Dosage: 5 MG, QD
     Route: 065
  2. PROZAC [Suspect]
     Active Substance: FLUOXETINE HYDROCHLORIDE
     Indication: DEPRESSION
     Dosage: UNK
     Route: 065
  3. ARISTADA [Suspect]
     Active Substance: ARIPIPRAZOLE LAUROXIL
     Indication: DEPRESSION
     Dosage: 675 MG, ONE TIME DOSE
     Route: 030
     Dates: start: 20191113, end: 20191113
  4. BENADRYL [Suspect]
     Active Substance: DIPHENHYDRAMINE HYDROCHLORIDE
     Indication: MUSCLE SPASMS
     Dosage: UNK
     Route: 065
  5. BENADRYL [Suspect]
     Active Substance: DIPHENHYDRAMINE HYDROCHLORIDE
     Indication: TREMOR
  6. ABILIFY [Suspect]
     Active Substance: ARIPIPRAZOLE
     Indication: PRODUCT USED FOR UNKNOWN INDICATION
     Dosage: UNK
     Route: 065
  7. ARISTADA [Suspect]
     Active Substance: ARIPIPRAZOLE LAUROXIL
     Indication: DEPRESSION
     Dosage: 662 MG, QM
     Route: 030

REACTIONS (25)
  - Toxicity to various agents [Not Recovered/Not Resolved]
  - Muscle twitching [Unknown]
  - Diarrhoea [Unknown]
  - Foot deformity [Unknown]
  - Tic [Unknown]
  - Malaise [Unknown]
  - Choking [Unknown]
  - Pneumonia [Unknown]
  - Skin hypertrophy [Unknown]
  - Tremor [Not Recovered/Not Resolved]
  - Skin striae [Unknown]
  - Nausea [Unknown]
  - Dizziness [Unknown]
  - Tardive dyskinesia [Unknown]
  - Delusion [Unknown]
  - Muscle spasms [Unknown]
  - Myoclonus [Recovered/Resolved]
  - Hallucination, auditory [Unknown]
  - Parkinson^s disease [Unknown]
  - Coronavirus infection [Unknown]
  - Skin swelling [Recovered/Resolved]
  - Product prescribing error [Unknown]
  - Cough [Unknown]
  - Dyspnoea [Unknown]
  - Fall [Unknown]

NARRATIVE: CASE EVENT DATE: 20200127
